FAERS Safety Report 19196391 (Version 1)
Quarter: 2021Q2

REPORT INFORMATION
  Report Type: Spontaneous
  Country: US (occurrence: US)
  Receive Date: 20210429
  Receipt Date: 20210429
  Transmission Date: 20210717
  Serious: No
  Sender: FDA-Public Use
  Company Number: US-ANIPHARMA-2020-US-020137

PATIENT
  Age: 67 Year
  Sex: Male

DRUGS (1)
  1. LITHIUM CARBONATE (NON?SPECIFIC) [Suspect]
     Active Substance: LITHIUM
     Indication: PRODUCT USED FOR UNKNOWN INDICATION
     Route: 065

REACTIONS (2)
  - Antipsychotic drug level above therapeutic [Unknown]
  - Fall [Unknown]
